FAERS Safety Report 4726057-6 (Version None)
Quarter: 2005Q3

REPORT INFORMATION
  Report Type: 
  Country: None (occurrence: None)
  Receive Date: 20050725
  Receipt Date: 20050712
  Transmission Date: 20060218
  Serious: Yes (Hospitalization)
  Sender: FDA-Public Use
  Company Number: HQWYE203714JUL05

PATIENT
  Age: 7 Month
  Sex: Male

DRUGS (3)
  1. CHILDREN'S ADVIL [Suspect]
     Indication: CONVULSION
     Dosage: ONE INTAKE ORAL
     Route: 048
     Dates: start: 20050428, end: 20050428
  2. CHILDREN'S ADVIL [Suspect]
     Indication: PYREXIA
     Dosage: ONE INTAKE ORAL
     Route: 048
     Dates: start: 20050428, end: 20050428
  3. DOLIPRANE                 (PARACETAMOL) [Concomitant]

REACTIONS (4)
  - CONDITION AGGRAVATED [None]
  - FUNGAL SKIN INFECTION [None]
  - MASTOIDITIS [None]
  - OTITIS MEDIA ACUTE [None]
